FAERS Safety Report 22331242 (Version 1)
Quarter: 2023Q2

REPORT INFORMATION
  Report Type: Spontaneous
  Country: US (occurrence: None)
  Receive Date: 20230515
  Receipt Date: 20230515
  Transmission Date: 20230722
  Serious: Yes (Hospitalization, Other)
  Sender: FDA-Public Use
  Company Number: None

PATIENT
  Age: 63 Year
  Sex: Male
  Weight: 96.75 kg

DRUGS (13)
  1. ATORVASTATIN [Suspect]
     Active Substance: ATORVASTATIN
     Indication: Hypertension
  2. ATORVASTATIN [Suspect]
     Active Substance: ATORVASTATIN
     Indication: Low density lipoprotein abnormal
  3. CRIXIVAN [Suspect]
     Active Substance: INDINAVIR SULFATE
  4. KALETRA [Suspect]
     Active Substance: LOPINAVIR\RITONAVIR
  5. GENVOYA [Suspect]
     Active Substance: COBICISTAT\ELVITEGRAVIR\EMTRICITABINE\TENOFOVIR ALAFENAMIDE FUMARATE
  6. TESTOSTERONE [Suspect]
     Active Substance: TESTOSTERONE
  7. LIPITOR [Concomitant]
     Active Substance: ATORVASTATIN CALCIUM
  8. PLAVIX [Concomitant]
     Active Substance: CLOPIDOGREL BISULFATE
  9. ELIQUIS [Concomitant]
     Active Substance: APIXABAN
  10. TWO BP MEDS [Concomitant]
  11. VITAMIN D [Concomitant]
     Active Substance: VITAMIN D NOS
  12. VITAMIN C [Concomitant]
     Active Substance: ASCORBIC ACID
  13. CHEWABLE MULTI VITAMINS [Concomitant]

REACTIONS (19)
  - Renal colic [None]
  - Abdominal distension [None]
  - Fat tissue increased [None]
  - Peripheral arterial occlusive disease [None]
  - Foot amputation [None]
  - Back pain [None]
  - Decubitus ulcer [None]
  - Nerve compression [None]
  - Arthralgia [None]
  - Myalgia [None]
  - Brain fog [None]
  - Aphasia [None]
  - Dysphemia [None]
  - Low density lipoprotein increased [None]
  - Memory impairment [None]
  - Coronary arterial stent insertion [None]
  - Frustration tolerance decreased [None]
  - Anger [None]
  - Emotional distress [None]

NARRATIVE: CASE EVENT DATE: 20200101
